FAERS Safety Report 8251676-2 (Version None)
Quarter: 2012Q2

REPORT INFORMATION
  Report Type: 
  Country: None (occurrence: None)
  Receive Date: 20120402
  Receipt Date: 20120214
  Transmission Date: 20120825
  Serious: No
  Sender: FDA-Public Use
  Company Number: US-ABBOTT-12P-163-0905268-00

PATIENT
  Age: 61 Year
  Sex: Male

DRUGS (5)
  1. ANDROGEL [Suspect]
     Indication: BLOOD TESTOSTERONE DECREASED
     Route: 061
     Dates: start: 20120123, end: 20120201
  2. ANDROGEL [Suspect]
     Route: 061
     Dates: start: 20120201
  3. PRAVACHOL [Concomitant]
     Indication: PRODUCT USED FOR UNKNOWN INDICATION
  4. ANDROGEL [Suspect]
     Route: 061
     Dates: end: 20120123
  5. ANDROGEL [Suspect]
     Indication: PRODUCT USED FOR UNKNOWN INDICATION
     Route: 061
     Dates: end: 20120123

REACTIONS (3)
  - LOW DENSITY LIPOPROTEIN INCREASED [None]
  - LIVER FUNCTION TEST ABNORMAL [None]
  - BLOOD TESTOSTERONE INCREASED [None]
